FAERS Safety Report 18349463 (Version 8)
Quarter: 2022Q2

REPORT INFORMATION
  Report Type: Spontaneous
  Country: FR (occurrence: FR)
  Receive Date: 20201006
  Receipt Date: 20220606
  Transmission Date: 20220720
  Serious: Yes (Other)
  Sender: FDA-Public Use
  Company Number: NVSC2020FR146604

PATIENT
  Age: 83 Year
  Sex: Female
  Weight: 60 kg

DRUGS (39)
  1. ONDANSETRON [Suspect]
     Active Substance: ONDANSETRON
     Indication: Antiemetic supportive care
     Dosage: 8 MG,QD
     Route: 065
     Dates: start: 20200128, end: 20200128
  2. ONDANSETRON [Suspect]
     Active Substance: ONDANSETRON
     Dosage: 8 MG, QD
     Route: 065
     Dates: start: 20200811, end: 20200811
  3. ZOFRAN [Suspect]
     Active Substance: ONDANSETRON HYDROCHLORIDE
     Indication: Peripheral T-cell lymphoma unspecified
     Dosage: 8 MG, QD
     Route: 065
     Dates: start: 20200128, end: 20200128
  4. ZOFRAN [Suspect]
     Active Substance: ONDANSETRON HYDROCHLORIDE
     Indication: Antiemetic supportive care
     Dosage: 8 MG
     Route: 065
     Dates: start: 20200211, end: 20200211
  5. ZOFRAN [Suspect]
     Active Substance: ONDANSETRON HYDROCHLORIDE
     Dosage: 8 MG, QD
     Route: 065
     Dates: start: 20200811, end: 20200811
  6. ZOFRAN [Suspect]
     Active Substance: ONDANSETRON HYDROCHLORIDE
     Dosage: 8 MG
     Route: 065
  7. ISTODAX [Suspect]
     Active Substance: ROMIDEPSIN
     Indication: Peripheral T-cell lymphoma unspecified
     Dosage: 14 MG/M2, FREQUENCY TEXT: D1, D8, D15 (INJECTION FOR INFUSION)
     Route: 042
     Dates: start: 20200702
  8. ISTODAX [Suspect]
     Active Substance: ROMIDEPSIN
     Dosage: 14 MG/M2, FREQUENCY TEXT: 1, 15 OF EACH 28 DAYS CYCLE 14 MILLIGRAM/SQ. METER
     Route: 042
     Dates: start: 20200309
  9. ISTODAX [Suspect]
     Active Substance: ROMIDEPSIN
     Dosage: 14 MG/M2, FREQUENCY TEXT: D1, D8, D15
     Route: 042
     Dates: start: 20200709
  10. ISTODAX [Suspect]
     Active Substance: ROMIDEPSIN
     Dosage: 10 MG/M2, FREQUENCY TEXT: NOT PROVIDED
     Route: 042
     Dates: start: 20210604
  11. ISTODAX [Suspect]
     Active Substance: ROMIDEPSIN
     Dosage: 10 MG/M2, FREQUENCY TEXT: NOT PROVIDED
     Route: 042
     Dates: start: 20211217
  12. ISTODAX [Suspect]
     Active Substance: ROMIDEPSIN
     Dosage: 14 MG/M2, FREQUENCY TEXT: 1, 15 OF EACH 28 DAYS CYCLE 14 MILLIGRAM/SQ. METER
     Route: 042
     Dates: start: 20200225
  13. ISTODAX [Suspect]
     Active Substance: ROMIDEPSIN
     Dosage: 11 MG/M2, FREQUENCY TEXT: 1, 15 OF EACH 28 DAYS CYCLE 11 MILLIGRAM/SQ. METER
     Route: 042
     Dates: start: 20200211
  14. ISTODAX [Suspect]
     Active Substance: ROMIDEPSIN
     Dosage: 14 MG/M2, FREQUENCY TEXT: D1, D8, D15
     Route: 042
     Dates: start: 20200406
  15. ISTODAX [Suspect]
     Active Substance: ROMIDEPSIN
     Dosage: 14 MG/M2 FREQUENCY TEXT: D1, D8, D15
     Route: 042
     Dates: start: 20200817
  16. ISTODAX [Suspect]
     Active Substance: ROMIDEPSIN
     Dosage: 10 MG/M2, FREQUENCY TEXT: NOT PROVIDED
     Route: 042
     Dates: start: 20220121
  17. ISTODAX [Suspect]
     Active Substance: ROMIDEPSIN
     Dosage: 14 MG/M2, FREQUENCY TEXT: D1, D8, D15
     Route: 042
     Dates: start: 20200717
  18. ISTODAX [Suspect]
     Active Substance: ROMIDEPSIN
     Dosage: UNK, FREQUENCY TEXT: D1, D8, D15
     Route: 042
     Dates: start: 20200806
  19. ISTODAX [Suspect]
     Active Substance: ROMIDEPSIN
     Dosage: 14 MG/M2, FREQUENCY TEXT: DAY 1, 8,15 OF EACH 28 DAY
     Route: 042
     Dates: start: 20200127
  20. ISTODAX [Suspect]
     Active Substance: ROMIDEPSIN
     Dosage: 14 MG/M2, FREQUENCY TEXT: D1, D15
     Route: 042
     Dates: start: 20200730
  21. ISTODAX [Suspect]
     Active Substance: ROMIDEPSIN
     Dosage: 14 MG/M2, FREQUENCY TEXT: NOT PROVIDED
     Route: 042
     Dates: start: 20210409
  22. ISTODAX [Suspect]
     Active Substance: ROMIDEPSIN
     Dosage: 23.75 MG/M2, QD, 23.75 MILLIGRAM/SQ. METER
     Route: 042
     Dates: start: 20200128, end: 20200128
  23. ISTODAX [Suspect]
     Active Substance: ROMIDEPSIN
     Dosage: 23.75 MG/M2, FREQUENCY TEXT: NOT PROVIDED
     Route: 042
     Dates: start: 20200811, end: 20200811
  24. ONDANSETRON [Concomitant]
     Active Substance: ONDANSETRON
     Indication: Antiemetic supportive care
     Dosage: 8 MG FREQUENCY TEXT: NOT PROVIDED
     Route: 065
  25. BENDAMUSTINE [Concomitant]
     Active Substance: BENDAMUSTINE
     Indication: Product used for unknown indication
     Dosage: UNK, FREQUENCY TEXT: NOT PROVIDED
     Route: 065
  26. CYCLOPHOSPHAMIDE\DOXORUBICIN\PREDNISONE\VINCRISTINE [Concomitant]
     Active Substance: CYCLOPHOSPHAMIDE\DOXORUBICIN\PREDNISONE\VINCRISTINE
     Indication: Product used for unknown indication
     Dosage: UNK
     Route: 065
  27. MIANSERIN [Concomitant]
     Active Substance: MIANSERIN
     Indication: Product used for unknown indication
     Dosage: UNK
     Route: 065
  28. MIANSERIN [Concomitant]
     Active Substance: MIANSERIN
     Dosage: FREQUENCY TEXT: 30/5
     Route: 065
  29. VALACYCLOVIR HYDROCHLORIDE [Concomitant]
     Active Substance: VALACYCLOVIR HYDROCHLORIDE
     Indication: Product used for unknown indication
     Dosage: UNK
     Route: 065
  30. VALACYCLOVIR HYDROCHLORIDE [Concomitant]
     Active Substance: VALACYCLOVIR HYDROCHLORIDE
     Dosage: UNIT DOSE : 500 FREQUENCY TEXT: NOT PROVIDED
     Route: 065
  31. ERYTHROPOIETIN [Concomitant]
     Active Substance: ERYTHROPOIETIN
     Indication: Product used for unknown indication
     Dosage: 3000 IU FREQUENCY TEXT: NOT PROVIDED
     Route: 065
  32. RISPERDAL [Concomitant]
     Active Substance: RISPERIDONE
     Indication: Product used for unknown indication
     Dosage: UNK
     Route: 065
  33. RISPERDAL [Concomitant]
     Active Substance: RISPERIDONE
     Dosage: UNIT DOSE : 2 FREQUENCY TEXT: 2/5
     Route: 065
  34. OXAZEPAM [Concomitant]
     Active Substance: OXAZEPAM
     Indication: Product used for unknown indication
     Dosage: UNK
     Route: 065
  35. OXAZEPAM [Concomitant]
     Active Substance: OXAZEPAM
     Dosage: UNIT DOSE : 20 FREQUENCY TEXT: 3/5
     Route: 065
  36. TRIMEBUTINE [Concomitant]
     Active Substance: TRIMEBUTINE
     Indication: Product used for unknown indication
     Dosage: UNK
     Route: 065
  37. TRIMEBUTINE [Concomitant]
     Active Substance: TRIMEBUTINE
     Dosage: UNIT DOSE : 200 FREQUENCY TEXT: 3/5
     Route: 065
  38. HYDROCHLOROTHIAZIDE\VALSARTAN [Concomitant]
     Active Substance: HYDROCHLOROTHIAZIDE\VALSARTAN
     Indication: Product used for unknown indication
     Dosage: UNK
     Route: 065
  39. HYDROCHLOROTHIAZIDE\VALSARTAN [Concomitant]
     Active Substance: HYDROCHLOROTHIAZIDE\VALSARTAN
     Dosage: FREQUENCY TEXT: 12.5
     Route: 065

REACTIONS (7)
  - Neutropenia [Recovered/Resolved]
  - Thrombocytopenia [Recovered/Resolved]
  - Neutropenia [Recovered/Resolved]
  - Haematotoxicity [Unknown]
  - Unevaluable event [Unknown]
  - Tonsillitis [Recovered/Resolved]
  - Product dose omission issue [Unknown]

NARRATIVE: CASE EVENT DATE: 20200101
